FAERS Safety Report 5851957-3 (Version None)
Quarter: 2008Q3

REPORT INFORMATION
  Report Type: 
  Country: None (occurrence: None)
  Receive Date: 20080820
  Receipt Date: 20080808
  Transmission Date: 20090109
  Serious: Yes (Other)
  Sender: FDA-Public Use
  Company Number: US-PFIZER INC-2008031718

PATIENT
  Sex: Female
  Weight: 81.6 kg

DRUGS (3)
  1. CHANTIX [Suspect]
     Indication: SMOKING CESSATION THERAPY
     Dosage: FREQ:INTERVAL: EVERY DAY
     Dates: start: 20070701, end: 20070901
  2. PREMARIN [Concomitant]
  3. IBUPROFEN [Concomitant]

REACTIONS (5)
  - ANXIETY [None]
  - DECREASED INTEREST [None]
  - DEPRESSED MOOD [None]
  - DEPRESSION [None]
  - PERSONALITY CHANGE [None]
